FAERS Safety Report 5301897-3 (Version None)
Quarter: 2007Q2

REPORT INFORMATION
  Report Type: 
  Country: None (occurrence: None)
  Receive Date: 20070419
  Receipt Date: 20070406
  Transmission Date: 20071010
  Serious: Yes (Hospitalization)
  Sender: FDA-Public Use
  Company Number: PHBS2007JP04461

PATIENT
  Age: 73 Year
  Sex: Male

DRUGS (6)
  1. LOCHOL [Suspect]
     Indication: HYPERLIPIDAEMIA
     Dosage: 20 MG/D
     Route: 048
     Dates: end: 20061101
  2. LOCHOL [Suspect]
     Dosage: 30 MG/D
     Route: 048
     Dates: start: 20061101
  3. NIKORANMART [Concomitant]
     Dosage: 15 MG/D
     Route: 048
  4. ALLOZYM [Concomitant]
     Dosage: 100 MG/D
     Route: 048
  5. ASPIRIN [Concomitant]
     Dosage: 100 MG/D
     Route: 048
  6. RANITAC [Concomitant]
     Dosage: 150 MG/D
     Route: 048

REACTIONS (6)
  - BLOOD CREATININE INCREASED [None]
  - BLOOD UREA INCREASED [None]
  - DECREASED APPETITE [None]
  - DIALYSIS [None]
  - MALAISE [None]
  - RENAL FAILURE [None]
